FAERS Safety Report 26077811 (Version 1)
Quarter: 2025Q4

REPORT INFORMATION
  Report Type: Spontaneous
  Country: US (occurrence: US)
  Receive Date: 20251122
  Receipt Date: 20251122
  Transmission Date: 20260118
  Serious: No
  Sender: MDD OPERATIONS
  Company Number: US-MDD US Operations-MDD202509-003948

PATIENT
  Age: 71 Year
  Sex: Male
  Weight: 86.18 kg

DRUGS (8)
  1. ONAPGO [Suspect]
     Active Substance: APOMORPHINE HYDROCHLORIDE
     Indication: Parkinson^s disease
     Dosage: 1.5MG PER HOUR
     Dates: start: 20250922
  2. ONAPGO [Suspect]
     Active Substance: APOMORPHINE HYDROCHLORIDE
     Indication: Dyskinesia
     Dosage: 1 CARTRIDGE UNDER THE SKIN FOR 16 HOURS OR LESS EACH DAY. CONTINUOUS DOSE (MAX 6MG/HR OR 98MG/DAY) A
     Dates: start: 202509
  3. ONAPGO [Suspect]
     Active Substance: APOMORPHINE HYDROCHLORIDE
     Indication: On and off phenomenon
     Dosage: 98MG/20ML (4.9MG/ML) ONCE DAILY
     Dates: start: 20250902
  4. ONAPGO [Suspect]
     Active Substance: APOMORPHINE HYDROCHLORIDE
     Dates: start: 20251029
  5. ONAPGO [Suspect]
     Active Substance: APOMORPHINE HYDROCHLORIDE
  6. CARBIDOPA\LEVODOPA [Concomitant]
     Active Substance: CARBIDOPA\LEVODOPA
     Dosage: 2 PILLS EVERY FOUR HOURS, FIVE TIMES A DAY/FOUR TO FIVE TIMES DAILY
  7. PRAMIPEXOLE [Concomitant]
     Active Substance: PRAMIPEXOLE
     Dosage: HALF PILL FIVE TIMES A DAY/TWICE DAILY
  8. Clavix [Concomitant]
     Dosage: NOT PROVIDED

REACTIONS (10)
  - Blood blister [Recovering/Resolving]
  - Dyskinesia [Unknown]
  - Somnolence [Unknown]
  - Injection site erythema [Recovered/Resolved]
  - Injection site irritation [Unknown]
  - Infusion site bruising [Unknown]
  - Infusion site haemorrhage [Recovered/Resolved]
  - Injection site swelling [Unknown]
  - Device occlusion [Unknown]
  - Device malfunction [Unknown]

NARRATIVE: CASE EVENT DATE: 20250924
